FAERS Safety Report 4625026-4 (Version None)
Quarter: 2005Q2

REPORT INFORMATION
  Report Type: 
  Country: None (occurrence: None)
  Receive Date: 20050325
  Receipt Date: 20050121
  Transmission Date: 20051028
  Serious: No
  Sender: FDA-Public Use
  Company Number: US_0502112472

PATIENT
  Age: 78 Year
  Sex: Female

DRUGS (2)
  1. FORTEO [Suspect]
     Indication: OSTEOPOROSIS
     Dosage: 20 UG DAY
  2. THYROID TAB [Concomitant]

REACTIONS (3)
  - BLOOD CALCIUM INCREASED [None]
  - DRY SKIN [None]
  - PRURITUS [None]
